FAERS Safety Report 5515243-3 (Version None)
Quarter: 2007Q4

REPORT INFORMATION
  Report Type: 
  Country: None (occurrence: None)
  Receive Date: 20071109
  Receipt Date: 20071031
  Transmission Date: 20080405
  Serious: Yes (Hospitalization)
  Sender: FDA-Public Use
  Company Number: 2007US002697

PATIENT
  Age: 54 Year
  Sex: Male

DRUGS (11)
  1. PROGRAF [Suspect]
     Indication: RENAL TRANSPLANT
     Dosage: 4 MG, BID; ORAL
     Route: 048
     Dates: start: 20050709
  2. MYCOPHENOLATE MOFETIL [Suspect]
     Indication: RENAL TRANSPLANT
     Dosage: 1000 MG, BID; ORAL
     Route: 048
     Dates: start: 20050709, end: 20050830
  3. PREDNISONE [Suspect]
     Indication: RENAL TRANSPLANT
     Dosage: 10 MG, ORAL
     Route: 048
     Dates: start: 20050709
  4. LABETALOL HCL [Concomitant]
  5. VALCYTE [Concomitant]
  6. MYCELEX [Concomitant]
  7. BACTRIM [Concomitant]
  8. ALDOMET [Concomitant]
  9. CLONIDINE [Concomitant]
  10. MINOXIDIL [Concomitant]
  11. ENALAPRIL MALEATE [Concomitant]

REACTIONS (1)
  - TENDON RUPTURE [None]
